FAERS Safety Report 17717796 (Version 1)
Quarter: 2020Q2

REPORT INFORMATION
  Report Type: Spontaneous
  Country: RU (occurrence: RU)
  Receive Date: 20200428
  Receipt Date: 20200428
  Transmission Date: 20200714
  Serious: Yes (Life-Threatening, Hospitalization, Other)
  Sender: FDA-Public Use
  Company Number: RU-ACCORD-179714

PATIENT
  Age: 13 Year
  Sex: Female

DRUGS (4)
  1. IFOSFAMIDE. [Suspect]
     Active Substance: IFOSFAMIDE
     Indication: EWING^S SARCOMA
  2. ETOPOSIDE. [Suspect]
     Active Substance: ETOPOSIDE
     Indication: EWING^S SARCOMA
  3. DOXORUBICIN [Suspect]
     Active Substance: DOXORUBICIN
     Indication: EWING^S SARCOMA
  4. VINCRISTINE [Suspect]
     Active Substance: VINCRISTINE
     Indication: EWING^S SARCOMA

REACTIONS (6)
  - Oesophageal candidiasis [Recovered/Resolved]
  - Stomatitis [Recovered/Resolved]
  - Febrile neutropenia [Recovered/Resolved]
  - Bone marrow failure [Recovered/Resolved]
  - Neutropenic colitis [Recovered/Resolved]
  - Complex regional pain syndrome [Recovered/Resolved]
